FAERS Safety Report 17586551 (Version 1)
Quarter: 2020Q1

REPORT INFORMATION
  Report Type: Spontaneous
  Country: US (occurrence: US)
  Receive Date: 20200326
  Receipt Date: 20200326
  Transmission Date: 20200409
  Serious: Yes (Hospitalization, Other)
  Sender: FDA-Public Use
  Company Number: None

PATIENT
  Age: 16 Year
  Sex: Male

DRUGS (11)
  1. VIT. D [Concomitant]
  2. HYOSCYAMINE. [Concomitant]
     Active Substance: HYOSCYAMINE
  3. CLOBETASOL [Concomitant]
     Active Substance: CLOBETASOL
  4. KETOCONAZOLE. [Concomitant]
     Active Substance: KETOCONAZOLE
  5. DEXTROAMPHET SACCHARAT, AMPHET ASPARTATE, DEXTROAMPHET SULFATE AND AMPHET SULFAT [Concomitant]
     Active Substance: AMPHETAMINE ASPARTATE\AMPHETAMINE SULFATE\DEXTROAMPHETAMINE SACCHARATE\DEXTROAMPHETAMINE SULFATE
  6. AMOXICILLIN. [Concomitant]
     Active Substance: AMOXICILLIN
  7. NORDITROPIN [Suspect]
     Active Substance: SOMATROPIN
     Indication: HYPOPITUITARISM
     Route: 058
     Dates: start: 20180111
  8. CLINDAMYCIN. [Concomitant]
     Active Substance: CLINDAMYCIN
  9. DOXYCYCL HYC [Concomitant]
  10. ONDANSETRON [Concomitant]
     Active Substance: ONDANSETRON
  11. HYDROCO/APAP [Concomitant]
     Active Substance: ACETAMINOPHEN\HYDROCODONE

REACTIONS (1)
  - Jaw operation [None]

NARRATIVE: CASE EVENT DATE: 20200326
